FAERS Safety Report 6646246-3 (Version None)
Quarter: 2010Q1

REPORT INFORMATION
  Report Type: 
  Country: None (occurrence: None)
  Receive Date: 20100323
  Receipt Date: 20100311
  Transmission Date: 20100710
  Serious: Yes (Other)
  Sender: FDA-Public Use
  Company Number: US-PFIZER INC-2010033096

PATIENT
  Sex: Female
  Weight: 81.646 kg

DRUGS (9)
  1. VFEND [Interacting]
     Indication: LYMPHOMA
     Dosage: 200 MG, 2X/DAY
     Dates: start: 20090708
  2. GABAPENTIN [Suspect]
     Indication: NEUROPATHY PERIPHERAL
     Dosage: UNK
     Dates: end: 20100101
  3. PREDNISONE [Suspect]
  4. LEVAQUIN [Interacting]
     Dosage: 500 MG, 1X/DAY
     Dates: start: 20100101
  5. ACICLOVIR [Concomitant]
     Dosage: 800 MG, 2X/DAY
  6. LEVOTHYROXINE SODIUM [Concomitant]
     Dosage: 125 MG, UNK
  7. MAGNESIUM [Concomitant]
     Dosage: 250 MG, 3X/DAY
  8. DAPSONE [Concomitant]
     Dosage: 100 MG, 1X/DAY
  9. TIMOLOL MALEATE [Concomitant]
     Indication: GLAUCOMA
     Dosage: UNK

REACTIONS (12)
  - AGITATION [None]
  - ARTHROPATHY [None]
  - BALANCE DISORDER [None]
  - CONTUSION [None]
  - DEPRESSION [None]
  - DRUG INTERACTION [None]
  - GRAFT VERSUS HOST DISEASE [None]
  - LOSS OF CONSCIOUSNESS [None]
  - MEMORY IMPAIRMENT [None]
  - MUSCLE SPASMS [None]
  - PHOTOSENSITIVITY REACTION [None]
  - SWELLING FACE [None]
